FAERS Safety Report 11110660 (Version 22)
Quarter: 2019Q3

REPORT INFORMATION
  Report Type: Report from Study
  Country: DE (occurrence: DE)
  Receive Date: 20150513
  Receipt Date: 20190709
  Transmission Date: 20191004
  Serious: Yes (Hospitalization, Disabling, Other)
  Sender: FDA-Public Use
  Company Number: DE-SA-2015SA047201

PATIENT
  Age: 62 Year
  Sex: Female

DRUGS (5)
  1. TERIFLUNOMIDE. [Suspect]
     Active Substance: TERIFLUNOMIDE
     Indication: MULTIPLE SCLEROSIS
     Dosage: 14 MG,UNK
     Route: 048
     Dates: start: 20150222, end: 20170220
  2. TERIFLUNOMIDE. [Suspect]
     Active Substance: TERIFLUNOMIDE
     Dosage: 14 MG,UNK
     Route: 048
     Dates: start: 20170222
  3. TERIFLUNOMIDE. [Suspect]
     Active Substance: TERIFLUNOMIDE
     Dosage: 14 MG, UNK
     Route: 048
     Dates: start: 201502
  4. RIZATRIPTAN BENZOATE. [Suspect]
     Active Substance: RIZATRIPTAN BENZOATE
     Dosage: UNK UNK,UNK
     Route: 065
  5. VERTIGOHEEL [HOMEOPATHICS NOS] [Concomitant]
     Indication: VERTIGO
     Dosage: 1 DF, TID
     Route: 060
     Dates: start: 20181121

REACTIONS (65)
  - Multiple sclerosis relapse [Recovering/Resolving]
  - Pyrexia [Recovered/Resolved]
  - Influenza [Recovered/Resolved]
  - Peripheral swelling [Not Recovered/Not Resolved]
  - Dysphagia [Unknown]
  - Balance disorder [Unknown]
  - Gastroenteritis viral [Unknown]
  - Cough [Recovered/Resolved]
  - Pain in extremity [Not Recovered/Not Resolved]
  - Headache [Not Recovered/Not Resolved]
  - Motor dysfunction [Not Recovered/Not Resolved]
  - Chest pain [Unknown]
  - Peripheral swelling [Unknown]
  - Diarrhoea [Recovered/Resolved]
  - Product use issue [Unknown]
  - Pain in extremity [Unknown]
  - Weight decreased [Unknown]
  - Bone pain [Unknown]
  - Circulatory collapse [Not Recovered/Not Resolved]
  - Balance disorder [Unknown]
  - Musculoskeletal disorder [Recovering/Resolving]
  - Mobility decreased [Recovering/Resolving]
  - Fall [Unknown]
  - Paraesthesia [Not Recovered/Not Resolved]
  - Cough [Not Recovered/Not Resolved]
  - Pain in extremity [Recovering/Resolving]
  - Diplopia [Recovering/Resolving]
  - Nasopharyngitis [Recovered/Resolved]
  - Eating disorder [Recovered/Resolved]
  - Joint swelling [Not Recovered/Not Resolved]
  - Onychoclasis [Not Recovered/Not Resolved]
  - Vomiting [Unknown]
  - Rhinorrhoea [Unknown]
  - Hypertension [Unknown]
  - Cardiovascular disorder [Unknown]
  - Neoplasm [Unknown]
  - Limb injury [Not Recovered/Not Resolved]
  - Feeling hot [Not Recovered/Not Resolved]
  - Feeling abnormal [Recovered/Resolved]
  - Alopecia [Recovering/Resolving]
  - Fatigue [Unknown]
  - Gait disturbance [Recovering/Resolving]
  - Condition aggravated [Not Recovered/Not Resolved]
  - Influenza like illness [Unknown]
  - Cystitis [Unknown]
  - Sudden hearing loss [Recovering/Resolving]
  - Tumour pain [Unknown]
  - Muscular weakness [Unknown]
  - Dysphonia [Not Recovered/Not Resolved]
  - Skin ulcer [Recovering/Resolving]
  - Oropharyngeal pain [Recovering/Resolving]
  - Paraesthesia [Not Recovered/Not Resolved]
  - Hypertension [Recovering/Resolving]
  - Hepatic enzyme increased [Unknown]
  - Fall [Unknown]
  - Neck injury [Unknown]
  - Nausea [Not Recovered/Not Resolved]
  - Musculoskeletal stiffness [Not Recovered/Not Resolved]
  - Pain [Unknown]
  - Hyperhidrosis [Recovering/Resolving]
  - Decreased appetite [Not Recovered/Not Resolved]
  - Skin abrasion [Unknown]
  - Arthralgia [Not Recovered/Not Resolved]
  - Paraesthesia [Unknown]
  - Hypoaesthesia [Not Recovered/Not Resolved]

NARRATIVE: CASE EVENT DATE: 2015
